FAERS Safety Report 11843816 (Version 7)
Quarter: 2016Q3

REPORT INFORMATION
  Report Type: Report from Study
  Country: GB (occurrence: GB)
  Receive Date: 20151217
  Receipt Date: 20160826
  Transmission Date: 20161109
  Serious: Yes (Hospitalization)
  Sender: FDA-Public Use
  Company Number: GB-ROCHE-1670572

PATIENT
  Age: 60 Year
  Sex: Male
  Weight: 85.9 kg

DRUGS (6)
  1. ATEZOLIZUMAB [Suspect]
     Active Substance: ATEZOLIZUMAB
     Indication: RENAL CELL CARCINOMA
     Dosage: MOST RECENT DOSE PRIOR TO THE EVENT: 06/NOV/2015 AND 26/NOV/2015 AT 1200 MG
     Route: 042
     Dates: start: 20150925
  2. DEXAMETHASONE. [Concomitant]
     Active Substance: DEXAMETHASONE
     Route: 042
     Dates: start: 20151127, end: 20151127
  3. BEVACIZUMAB [Suspect]
     Active Substance: BEVACIZUMAB
     Indication: RENAL CELL CARCINOMA
     Dosage: MOST RECENT DOSE PRIOR TO THE EVENT: 06/NOV/2015 AND 26/NOV/2015 AT 1290 MG
     Route: 042
     Dates: start: 20150925
  4. AMLODIPINE [Concomitant]
     Active Substance: AMLODIPINE BESYLATE
     Indication: HYPERTENSION
     Route: 048
  5. RAMIPRIL. [Concomitant]
     Active Substance: RAMIPRIL
     Indication: HYPERTENSION
     Route: 048
     Dates: start: 20160126
  6. LOPERAMIDE [Concomitant]
     Active Substance: LOPERAMIDE
     Indication: DIARRHOEA
     Route: 048
     Dates: start: 20160126

REACTIONS (2)
  - Pyrexia [Recovered/Resolved]
  - Seizure [Recovered/Resolved with Sequelae]

NARRATIVE: CASE EVENT DATE: 20151127
